FAERS Safety Report 20978223 (Version 3)
Quarter: 2025Q2

REPORT INFORMATION
  Report Type: Spontaneous
  Country: US (occurrence: US)
  Receive Date: 20220618
  Receipt Date: 20250510
  Transmission Date: 20250717
  Serious: No
  Sender: SANOFI AVENTIS
  Company Number: US-SA-SAC20220613001696

PATIENT
  Age: 72 Year
  Sex: Male

DRUGS (23)
  1. DUPIXENT [Suspect]
     Active Substance: DUPILUMAB
     Indication: Dermatitis atopic
     Dosage: 300 MG, QOW
     Route: 058
     Dates: start: 20190323
  2. ASPIRIN [Concomitant]
     Active Substance: ASPIRIN
  3. CLOBETASOL [Concomitant]
     Active Substance: CLOBETASOL
  4. FUROSEMIDE [Concomitant]
     Active Substance: FUROSEMIDE
     Indication: Hypertension
  5. LATANOPROST [Concomitant]
     Active Substance: LATANOPROST
  6. LEVOTHYROXINE [Concomitant]
     Active Substance: LEVOTHYROXINE
  7. METOPROLOL SUCCINATE [Concomitant]
     Active Substance: METOPROLOL SUCCINATE
  8. METOPROLOL TARTRATE [Concomitant]
     Active Substance: METOPROLOL TARTRATE
  9. OXICONAZOLE NITRATE [Concomitant]
     Active Substance: OXICONAZOLE NITRATE
  10. SYNTHROID [Concomitant]
     Active Substance: LEVOTHYROXINE SODIUM
  11. VALSARTAN [Concomitant]
     Active Substance: VALSARTAN
  12. MAGNESIUM OXIDE [Concomitant]
     Active Substance: MAGNESIUM OXIDE
  13. METOPROLOL [Concomitant]
     Active Substance: METOPROLOL
  14. CYCLOPENTOLATE HYDROCHLORIDE [Concomitant]
     Active Substance: CYCLOPENTOLATE HYDROCHLORIDE
  15. ASPIRIN [Concomitant]
     Active Substance: ASPIRIN
  16. FUROSEMIDE [Concomitant]
     Active Substance: FUROSEMIDE
  17. LEVOTHYROXINE SODIUM [Concomitant]
     Active Substance: LEVOTHYROXINE SODIUM
  18. CORDRAN [Concomitant]
     Active Substance: FLURANDRENOLIDE
  19. CLOBETASOL [Concomitant]
     Active Substance: CLOBETASOL
  20. LOTEMAX SM [Concomitant]
     Active Substance: LOTEPREDNOL ETABONATE
  21. OPZELURA [Concomitant]
     Active Substance: RUXOLITINIB PHOSPHATE
  22. LATANOPROST [Concomitant]
     Active Substance: LATANOPROST
  23. KETOROLAC TROMETHAMINE [Concomitant]
     Active Substance: KETOROLAC TROMETHAMINE

REACTIONS (3)
  - Sleep disorder due to a general medical condition [Unknown]
  - Eye irritation [Unknown]
  - Drug ineffective [Unknown]
